FAERS Safety Report 10696920 (Version 2)
Quarter: 2015Q1

REPORT INFORMATION
  Report Type: Spontaneous
  Country: US (occurrence: US)
  Receive Date: 20150108
  Receipt Date: 20150108
  Transmission Date: 20150721
  Serious: No
  Sender: FDA-Public Use
  Company Number: US-LEO PHARMA-230732

PATIENT
  Age: 76 Year
  Sex: Female
  Weight: 57.6 kg

DRUGS (2)
  1. LISINOPRIL. [Concomitant]
     Active Substance: LISINOPRIL
     Indication: HYPERTENSION
  2. PICATO [Suspect]
     Active Substance: INGENOL MEBUTATE
     Indication: SKIN EXFOLIATION
     Route: 061
     Dates: start: 20141029, end: 20141030

REACTIONS (8)
  - Application site erythema [Recovered/Resolved]
  - Incorrect drug administration duration [Unknown]
  - Blister rupture [Recovered/Resolved]
  - Application site erosion [Recovered/Resolved]
  - Application site discolouration [Recovered/Resolved]
  - Application site pustules [Recovered/Resolved]
  - Application site vesicles [Recovered/Resolved]
  - Product use issue [Unknown]

NARRATIVE: CASE EVENT DATE: 20141031
